FAERS Safety Report 10637506 (Version 3)
Quarter: 2015Q2

REPORT INFORMATION
  Report Type: Spontaneous
  Country: CA (occurrence: CA)
  Receive Date: 20141208
  Receipt Date: 20150520
  Transmission Date: 20150821
  Serious: Yes (Hospitalization, Other)
  Sender: FDA-Public Use
  Company Number: CA-GSKJP-DK201416122002

PATIENT

DRUGS (14)
  1. SPIRIVA [Suspect]
     Active Substance: TIOTROPIUM BROMIDE MONOHYDRATE
     Indication: PRODUCT USED FOR UNKNOWN INDICATION
     Route: 065
  2. ANTIHYPERTENSIVE [Concomitant]
     Active Substance: UNSPECIFIED INGREDIENT
     Indication: HYPERTENSION
     Route: 065
  3. CLARITHROMYCIN. [Suspect]
     Active Substance: CLARITHROMYCIN
     Indication: PRODUCT USED FOR UNKNOWN INDICATION
     Route: 065
  4. CLONAZEPAM. [Concomitant]
     Active Substance: CLONAZEPAM
  5. VENTOLIN [Suspect]
     Active Substance: ALBUTEROL SULFATE
     Indication: PRODUCT USED FOR UNKNOWN INDICATION
     Route: 065
  6. GABA [Concomitant]
     Active Substance: .GAMMA.-AMINOBUTYRIC ACID
     Indication: PRODUCT USED FOR UNKNOWN INDICATION
     Route: 065
  7. PREDNISONE. [Suspect]
     Active Substance: PREDNISONE
     Indication: PRODUCT USED FOR UNKNOWN INDICATION
     Route: 065
  8. UNKNOWN MEDICATION [Concomitant]
     Active Substance: UNSPECIFIED INGREDIENT
     Indication: HIATUS HERNIA
     Route: 065
  9. ADVAIR DISKUS [Suspect]
     Active Substance: FLUTICASONE PROPIONATE\SALMETEROL XINAFOATE
     Indication: CHRONIC OBSTRUCTIVE PULMONARY DISEASE
     Dosage: 1 DF, BID
     Route: 055
     Dates: start: 201407
  10. ATROVENT [Suspect]
     Active Substance: IPRATROPIUM BROMIDE
     Indication: PRODUCT USED FOR UNKNOWN INDICATION
     Route: 065
  11. SEEBRI BREEZHALER [Suspect]
     Active Substance: GLYCOPYRROLATE
     Indication: PRODUCT USED FOR UNKNOWN INDICATION
     Route: 065
  12. UNKNOWN DRUG FOR ANXIETY [Suspect]
     Active Substance: UNSPECIFIED INGREDIENT
     Indication: ANXIETY
     Dosage: 2 TO 4 TABLETS DIE
     Route: 065
  13. CIPRALEX [Suspect]
     Active Substance: ESCITALOPRAM OXALATE
     Indication: PRODUCT USED FOR UNKNOWN INDICATION
  14. MELOXICAM. [Concomitant]
     Active Substance: MELOXICAM

REACTIONS (38)
  - Dyspnoea [Not Recovered/Not Resolved]
  - Anxiety [Unknown]
  - Diarrhoea [Unknown]
  - Malaise [Unknown]
  - Hypoaesthesia [Unknown]
  - Fatigue [Unknown]
  - Chest discomfort [Unknown]
  - Arterial disorder [Unknown]
  - Movement disorder [Unknown]
  - Drug ineffective [Not Recovered/Not Resolved]
  - Pulmonary mass [Not Recovered/Not Resolved]
  - Gait disturbance [Unknown]
  - Pneumonia [Unknown]
  - Bone disorder [Unknown]
  - Hiatus hernia [Unknown]
  - Pain [Unknown]
  - Panic reaction [Unknown]
  - Restlessness [Unknown]
  - Thinking abnormal [Unknown]
  - Limb discomfort [Unknown]
  - Infection [Unknown]
  - Overdose [Unknown]
  - Fall [Unknown]
  - Dyspnoea exertional [Not Recovered/Not Resolved]
  - Insomnia [Not Recovered/Not Resolved]
  - Depression [Unknown]
  - Lung infection [Unknown]
  - Cough [Unknown]
  - Emphysema [Unknown]
  - Headache [Unknown]
  - Scar [Unknown]
  - Decreased appetite [Not Recovered/Not Resolved]
  - Cyanosis [Unknown]
  - Tremor [Unknown]
  - Asthenia [Unknown]
  - Pruritus [Unknown]
  - Dizziness [Unknown]
  - Biopsy lung [Unknown]

NARRATIVE: CASE EVENT DATE: 20141110
